FAERS Safety Report 21386736 (Version 1)
Quarter: 2022Q3

REPORT INFORMATION
  Report Type: Spontaneous
  Country: ID (occurrence: ID)
  Receive Date: 20220928
  Receipt Date: 20220928
  Transmission Date: 20221026
  Serious: Yes (Other)
  Sender: FDA-Public Use
  Company Number: ID-CHIESI-2022CHF04907

PATIENT
  Sex: Male

DRUGS (6)
  1. DEFERIPRONE [Suspect]
     Active Substance: DEFERIPRONE
     Indication: Thalassaemia beta
     Dosage: 75 MILLIGRAM/KILOGRAM, QD
  2. DEFERIPRONE [Suspect]
     Active Substance: DEFERIPRONE
     Indication: Iron overload
  3. DEFERASIROX [Suspect]
     Active Substance: DEFERASIROX
     Indication: Iron overload
     Dosage: 25 MILLIGRAM/KILOGRAM, QD
     Dates: start: 2020
  4. DEFERASIROX [Suspect]
     Active Substance: DEFERASIROX
     Indication: Thalassaemia
  5. DEFEROXAMINE [Suspect]
     Active Substance: DEFEROXAMINE MESYLATE
     Indication: Iron overload
     Dosage: 30 MILLIGRAM/KILOGRAM, QD
     Route: 058
  6. DEFEROXAMINE [Suspect]
     Active Substance: DEFEROXAMINE MESYLATE
     Indication: Thalassaemia

REACTIONS (2)
  - Retinal dystrophy [Not Recovered/Not Resolved]
  - Treatment noncompliance [Unknown]
